FAERS Safety Report 12194364 (Version 1)
Quarter: 2016Q1

REPORT INFORMATION
  Report Type: Spontaneous
  Country: GR (occurrence: None)
  Receive Date: 20160318
  Receipt Date: 20160318
  Transmission Date: 20160526
  Serious: Yes (Hospitalization)
  Sender: FDA-Public Use
  Company Number: None

PATIENT
  Age: 69 Year
  Sex: Male
  Weight: 85 kg

DRUGS (1)
  1. ARTICAINE HYDROCHLORIDE [Suspect]
     Active Substance: ARTICAINE HYDROCHLORIDE
     Dates: start: 20151121, end: 20160304

REACTIONS (2)
  - Deafness unilateral [None]
  - Deafness transitory [None]

NARRATIVE: CASE EVENT DATE: 20151121
